FAERS Safety Report 20664408 (Version 1)
Quarter: 2022Q2

REPORT INFORMATION
  Report Type: Spontaneous
  Country: BR (occurrence: BR)
  Receive Date: 20220401
  Receipt Date: 20220401
  Transmission Date: 20220720
  Serious: Yes (Hospitalization)
  Sender: FDA-Public Use
  Company Number: BR-ORGANON-O2203BRA002526

PATIENT
  Sex: Female
  Weight: 80 kg

DRUGS (6)
  1. LOSARTAN POTASSIUM [Suspect]
     Active Substance: LOSARTAN POTASSIUM
     Indication: Blood pressure increased
     Dosage: 1 TABLET IN THE MORNING
     Route: 048
     Dates: start: 2015
  2. ETORICOXIB [Suspect]
     Active Substance: ETORICOXIB
     Indication: Pain in extremity
     Dosage: 1 TABLET, DAILY DURING 5 DAYS
     Route: 048
     Dates: start: 20220303
  3. METOPROLOL SUCCINATE [Concomitant]
     Active Substance: METOPROLOL SUCCINATE
     Dosage: 1 TABLET IN THE MORNING
     Route: 048
  4. OMEGA-3 FATTY ACIDS [Concomitant]
     Active Substance: OMEGA-3 FATTY ACIDS
     Dosage: 1 TABLET AFTER LUNCH
     Route: 048
     Dates: start: 2021
  5. ASCORBIC ACID [Concomitant]
     Active Substance: ASCORBIC ACID
     Dosage: UNK
  6. COLLAGEN [Concomitant]
     Active Substance: COLLAGEN
     Dosage: UNK
     Dates: start: 2020

REACTIONS (12)
  - Blood pressure increased [Recovered/Resolved]
  - Blood pressure abnormal [Unknown]
  - Muscular weakness [Unknown]
  - Emotional disorder [Unknown]
  - Blood pressure increased [Unknown]
  - Bradyphrenia [Unknown]
  - Anxiety [Unknown]
  - Illness [Unknown]
  - Impaired work ability [Unknown]
  - Myalgia [Unknown]
  - Asthenia [Unknown]
  - Vomiting [Unknown]

NARRATIVE: CASE EVENT DATE: 20220301
